FAERS Safety Report 8505341-4 (Version None)
Quarter: 2012Q3

REPORT INFORMATION
  Report Type: 
  Country: None (occurrence: None)
  Receive Date: 20120712
  Receipt Date: 20120706
  Transmission Date: 20120928
  Serious: Yes (Hospitalization)
  Sender: FDA-Public Use
  Company Number: PHEH2012US013339

PATIENT

DRUGS (2)
  1. CLOZARIL [Suspect]
     Dosage: UNK UKN, UNK
     Route: 065
  2. CLOZARIL [Suspect]
     Dosage: UNK UKN, UNK
     Route: 065
     Dates: start: 20120401

REACTIONS (1)
  - GENERAL PHYSICAL HEALTH DETERIORATION [None]
